FAERS Safety Report 12374120 (Version 1)
Quarter: 2016Q2

REPORT INFORMATION
  Report Type: Spontaneous
  Country: BR (occurrence: BR)
  Receive Date: 20160517
  Receipt Date: 20160517
  Transmission Date: 20160815
  Serious: Yes (Hospitalization)
  Sender: FDA-Public Use
  Company Number: BR-AMGEN-BRASP2016061999

PATIENT
  Age: 68 Year
  Sex: Female
  Weight: 84 kg

DRUGS (2)
  1. ENBREL [Suspect]
     Active Substance: ETANERCEPT
     Indication: RHEUMATOID ARTHRITIS
     Dosage: 50 MG, ONCE WEEKLY
     Route: 058
     Dates: end: 2015
  2. PARACETAMOL [Concomitant]
     Active Substance: ACETAMINOPHEN
     Dosage: TWO TABLETS (1000 MG), DAILY

REACTIONS (7)
  - Arthralgia [Unknown]
  - Anal haemorrhage [Recovered/Resolved]
  - Pain [Unknown]
  - Influenza [Not Recovered/Not Resolved]
  - Pain in extremity [Unknown]
  - Swelling [Unknown]
  - Abdominal pain [Unknown]

NARRATIVE: CASE EVENT DATE: 20160502
